FAERS Safety Report 8554865-2 (Version None)
Quarter: 2012Q3

REPORT INFORMATION
  Report Type: 
  Country: None (occurrence: None)
  Receive Date: 20120731
  Receipt Date: 20120725
  Transmission Date: 20120928
  Serious: Yes (Hospitalization)
  Sender: FDA-Public Use
  Company Number: GB-JNJFOC-20120715208

PATIENT
  Sex: Female
  Weight: 100 kg

DRUGS (4)
  1. METHOTREXATE [Concomitant]
     Route: 065
     Dates: start: 20110916, end: 20120307
  2. STELARA [Suspect]
     Indication: PSORIASIS
     Route: 058
     Dates: start: 20120215
  3. FOLIC ACID [Concomitant]
     Route: 065
     Dates: start: 20110916, end: 20120307
  4. CYCLOSPORINE [Concomitant]
     Route: 065
     Dates: start: 20120125, end: 20120623

REACTIONS (2)
  - EAR PAIN [None]
  - OTORRHOEA [None]
